FAERS Safety Report 17551548 (Version 1)
Quarter: 2020Q1

REPORT INFORMATION
  Report Type: Spontaneous
  Country: US (occurrence: US)
  Receive Date: 20200317
  Receipt Date: 20200317
  Transmission Date: 20200409
  Serious: Yes (Hospitalization, Other)
  Sender: FDA-Public Use
  Company Number: US-SA-2020SA067212

PATIENT
  Sex: Male
  Weight: 72.56 kg

DRUGS (13)
  1. ACETAMINOPHEN. [Concomitant]
     Active Substance: ACETAMINOPHEN
     Route: 065
  2. CYCLOBENZAPRINE. [Concomitant]
     Active Substance: CYCLOBENZAPRINE
     Route: 065
  3. FABRAZYME [Suspect]
     Active Substance: AGALSIDASE BETA
     Indication: FABRY^S DISEASE
  4. SOLU-CORTEF [Concomitant]
     Active Substance: HYDROCORTISONE SODIUM SUCCINATE
     Route: 065
  5. METOPROLOL. [Concomitant]
     Active Substance: METOPROLOL
     Route: 065
  6. EPINEPHRINE. [Concomitant]
     Active Substance: EPINEPHRINE
     Dosage: AUTO-INJECTOR
     Route: 065
  7. ULORIC [Concomitant]
     Active Substance: FEBUXOSTAT
     Route: 065
  8. FABRAZYME [Suspect]
     Active Substance: AGALSIDASE BETA
     Indication: LIPIDOSIS
     Dosage: 65 MG, QOW; STRENGTH 35 MG
     Route: 042
     Dates: start: 20141202
  9. LYRICA [Concomitant]
     Active Substance: PREGABALIN
     Route: 065
  10. LOSARTAN. [Concomitant]
     Active Substance: LOSARTAN
     Route: 065
  11. DIPHENHYDRAMINE. [Concomitant]
     Active Substance: DIPHENHYDRAMINE
     Route: 065
  12. ROPINIROLE. [Concomitant]
     Active Substance: ROPINIROLE
     Route: 065
  13. NORMAL SALINE [Concomitant]
     Active Substance: SODIUM CHLORIDE
     Route: 065

REACTIONS (1)
  - Pneumonia [Unknown]
